FAERS Safety Report 13878404 (Version 1)
Quarter: 2017Q3

REPORT INFORMATION
  Report Type: Spontaneous
  Country: US (occurrence: US)
  Receive Date: 20170817
  Receipt Date: 20170817
  Transmission Date: 20171127
  Serious: No
  Sender: FDA-Public Use
  Company Number: US-ROCHE-1916932

PATIENT
  Sex: Female

DRUGS (1)
  1. PEGASYS [Suspect]
     Active Substance: PEGINTERFERON ALFA-2A
     Indication: MYCOSIS FUNGOIDES
     Dosage: ONGOING: YES
     Route: 058
     Dates: start: 20161224

REACTIONS (2)
  - Off label use [Unknown]
  - No adverse event [Unknown]
